FAERS Safety Report 11552882 (Version 1)
Quarter: 2015Q3

REPORT INFORMATION
  Report Type: Spontaneous
  Country: US (occurrence: US)
  Receive Date: 20150925
  Receipt Date: 20150925
  Transmission Date: 20151125
  Serious: No
  Sender: FDA-Public Use
  Company Number: US-ENDO PHARMACEUTICALS INC.-2015-002119

PATIENT
  Sex: Male
  Weight: 90.8 kg

DRUGS (1)
  1. VALSARTAN/HYDROCHLOROTHIAZIDE TABLETS 160MG/12.5MG [Suspect]
     Active Substance: HYDROCHLOROTHIAZIDE\VALSARTAN
     Indication: BLOOD PRESSURE MEASUREMENT
     Route: 065
     Dates: start: 201208

REACTIONS (1)
  - Blood pressure increased [Unknown]
